FAERS Safety Report 8093355 (Version 3)
Quarter: 2014Q3

REPORT INFORMATION
  Report Type: Spontaneous
  Country: FR (occurrence: FR)
  Receive Date: 20110817
  Receipt Date: 20140729
  Transmission Date: 20150326
  Serious: Yes (Hospitalization)
  Sender: FDA-Public Use
  Company Number: FR-RANBAXY-2011RR-46795

PATIENT
  Age: 17 Year
  Sex: Female

DRUGS (2)
  1. TRIMEBUTINE [Suspect]
     Active Substance: TRIMEBUTINE
     Indication: OVERDOSE
     Dosage: 600 MG, SINGLE
     Route: 065
  2. LOPERAMIDE [Suspect]
     Active Substance: LOPERAMIDE
     Indication: OVERDOSE
     Dosage: 18 MG, SINGLE
     Route: 065

REACTIONS (2)
  - Pancreatic enzymes increased [Recovered/Resolved]
  - Overdose [Recovered/Resolved]
